FAERS Safety Report 16350003 (Version 1)
Quarter: 2019Q2

REPORT INFORMATION
  Report Type: Spontaneous
  Country: CN (occurrence: CN)
  Receive Date: 20190523
  Receipt Date: 20190523
  Transmission Date: 20190711
  Serious: Yes (Life-Threatening)
  Sender: FDA-Public Use
  Company Number: PHHY2019CN118093

PATIENT
  Age: 46 Year
  Sex: Female
  Weight: 48 kg

DRUGS (9)
  1. BUSULFEX [Suspect]
     Active Substance: BUSULFAN
     Indication: TRANSPLANTATION COMPLICATION
     Dosage: 38.4 MG, QID
     Route: 041
     Dates: start: 20190428, end: 20190501
  2. PHENERGAN [Concomitant]
     Active Substance: PROMETHAZINE HYDROCHLORIDE
     Indication: INFUSION RELATED REACTION
     Dosage: 12.5 MG, UNK
     Route: 030
  3. CETIRIZINE [Concomitant]
     Active Substance: CETIRIZINE HYDROCHLORIDE
     Indication: INFUSION RELATED REACTION
     Dosage: 10 MG, UNK
     Route: 065
  4. SANDIMMUN NEORAL [Suspect]
     Active Substance: CYCLOSPORINE
     Indication: BONE MARROW TRANSPLANT REJECTION
     Dosage: 70 MG, BID
     Route: 041
     Dates: start: 20190502, end: 20190509
  5. SODIUM CHLORIDE. [Concomitant]
     Active Substance: SODIUM CHLORIDE
     Dosage: 64 ML, TID
     Route: 041
     Dates: start: 20190428, end: 20190501
  6. METHYLPREDNISOLONE. [Concomitant]
     Active Substance: METHYLPREDNISOLONE
     Indication: INFUSION RELATED REACTION
     Route: 065
  7. SODIUM CHLORIDE. [Concomitant]
     Active Substance: SODIUM CHLORIDE
     Indication: PRODUCT USED FOR UNKNOWN INDICATION
     Dosage: 100 ML, BID
     Route: 041
     Dates: start: 20190427
  8. SODIUM BICARBONATE. [Concomitant]
     Active Substance: SODIUM BICARBONATE
     Indication: INFUSION RELATED REACTION
     Route: 065
  9. SANDIMMUN NEORAL [Suspect]
     Active Substance: CYCLOSPORINE
     Indication: BONE MARROW TRANSPLANT
     Dosage: 60 MG, BID
     Route: 041
     Dates: start: 20190427, end: 20190501

REACTIONS (4)
  - Cardiac arrest [Recovering/Resolving]
  - Blood pressure increased [Recovering/Resolving]
  - Generalised tonic-clonic seizure [Recovering/Resolving]
  - Headache [Recovering/Resolving]

NARRATIVE: CASE EVENT DATE: 20190509
